FAERS Safety Report 8506553 (Version 2)
Quarter: 2013Q4

REPORT INFORMATION
  Report Type: Spontaneous
  Country: JP (occurrence: JP)
  Receive Date: 20120312
  Receipt Date: 20131129
  Transmission Date: 20140711
  Serious: Yes (Other)
  Sender: FDA-Public Use
  Company Number: 2012SP001182

PATIENT
  Age: 38 Year
  Sex: Female
  Weight: 48 kg

DRUGS (7)
  1. DOCETAXEL [Suspect]
     Indication: BREAST CANCER
     Dates: start: 20100615, end: 20100810
  2. EPIRUBICIN [Suspect]
     Indication: BREAST CANCER
     Route: 042
  3. FLUOROURACIL [Suspect]
     Indication: BREAST CANCER
     Dates: start: 20100223, end: 20100518
  4. PROPOFOL [Suspect]
     Indication: ANAESTHESIA
     Dates: start: 20100915, end: 20100915
  5. FENTANYL [Suspect]
     Indication: ANAESTHESIA
     Dates: start: 20100915, end: 20100915
  6. CYCLOPHOSPHAMIDE [Suspect]
     Indication: BREAST CANCER
     Dates: start: 20100223, end: 20100518
  7. ROCURONIUM [Concomitant]
     Indication: ANAESTHESIA

REACTIONS (3)
  - Drug interaction [Unknown]
  - Bradycardia [Recovered/Resolved]
  - Extrasystoles [Recovered/Resolved]
